FAERS Safety Report 18918850 (Version 1)
Quarter: 2021Q1

REPORT INFORMATION
  Report Type: Spontaneous
  Country: CH (occurrence: CH)
  Receive Date: 20210220
  Receipt Date: 20210220
  Transmission Date: 20210420
  Serious: Yes (Hospitalization)
  Sender: FDA-Public Use
  Company Number: CH-MICRO LABS LIMITED-ML2021-00481

PATIENT
  Age: 39 Year
  Sex: Female

DRUGS (6)
  1. RISPERIDONE. [Concomitant]
     Active Substance: RISPERIDONE
  2. BUPROPION. [Suspect]
     Active Substance: BUPROPION
  3. LORAZEPAM. [Concomitant]
     Active Substance: LORAZEPAM
  4. PREGABALIN. [Concomitant]
     Active Substance: PREGABALIN
  5. VENLAFAXINE [Suspect]
     Active Substance: VENLAFAXINE HYDROCHLORIDE
  6. KETAMINE [Concomitant]
     Active Substance: KETAMINE

REACTIONS (1)
  - Drug ineffective [Unknown]
